FAERS Safety Report 5706407-4 (Version None)
Quarter: 2008Q2

REPORT INFORMATION
  Report Type: 
  Country: None (occurrence: None)
  Receive Date: 20080411
  Receipt Date: 20080225
  Transmission Date: 20081010
  Serious: Yes (Hospitalization)
  Sender: FDA-Public Use
  Company Number: CHNY2008DE00767

PATIENT
  Age: 76 Year
  Sex: Male

DRUGS (60)
  1. PANTOPRAZOLE SODIUM [Suspect]
     Dosage: 40 MG, QD,; ORAL
     Route: 048
     Dates: start: 20021128, end: 20021214
  2. PANTOPRAZOLE SODIUM [Suspect]
     Dosage: 40 MG, QD,; ORAL
     Route: 048
     Dates: start: 20021102
  3. TEGRETOL [Suspect]
     Dosage: 100 MG, TID, ORAL
     Route: 048
     Dates: start: 20021223
  4. FENISTIL (DIMETINDENE MALEATE) [Suspect]
     Indication: PRURITUS
     Dosage: 2 DF, BID, ORAL; 2 DF, TID, ORAL
     Route: 048
     Dates: end: 20021214
  5. FENISTIL (DIMETINDENE MALEATE) [Suspect]
     Indication: PRURITUS
     Dosage: 2 DF, BID, ORAL; 2 DF, TID, ORAL
     Route: 048
     Dates: start: 20021127
  6. ASPIRIN [Suspect]
     Dosage: 100 MG, QD, ORAL
     Route: 048
     Dates: start: 20021128, end: 20021214
  7. ASPIRIN [Suspect]
     Dosage: 100 MG, QD, ORAL
     Route: 048
     Dates: start: 19980101
  8. ASPIRIN [Suspect]
     Dosage: 100 MG, QD, ORAL
     Route: 048
     Dates: start: 20021224
  9. ALLOPURINOL [Suspect]
     Dosage: 100 MG, QD, ORAL
     Route: 048
     Dates: start: 20021101
  10. ALLOPURINOL [Suspect]
     Dosage: 100 MG, QD, ORAL
     Route: 048
     Dates: start: 20021225
  11. MORPHINE [Suspect]
     Dosage: 3 DF, QD, INTRAVENOUS
     Route: 042
     Dates: start: 20021215, end: 20021220
  12. CEFUROXIME [Suspect]
     Dosage: INTRAVENOUS
     Route: 042
     Dates: start: 20021215, end: 20021221
  13. DECORTIN(PREDNISONE) [Suspect]
     Dosage: 25 MG, QD, ORAL; 25 MG, 2 -0,; 10 MG, 5-2-2,; 10 MG, 5 ,
     Route: 048
     Dates: end: 20021214
  14. DECORTIN(PREDNISONE) [Suspect]
     Dosage: 25 MG, QD, ORAL; 25 MG, 2 -0,; 10 MG, 5-2-2,; 10 MG, 5 ,
     Route: 048
     Dates: start: 20021202
  15. DEXAMETHASONE TAB [Suspect]
     Dosage: 4 MG, TID, ORAL; 2 MG, 2 , ORAL
     Route: 048
     Dates: end: 20021202
  16. DEXAMETHASONE TAB [Suspect]
     Dosage: 4 MG, TID, ORAL; 2 MG, 2 , ORAL
     Route: 048
     Dates: start: 20021111
  17. PREDNISOLONE [Suspect]
     Dosage: 50 MG, 2 , INTRAVENOUS; 50 MG, 2 -0, INTRAVENOUS
     Route: 042
     Dates: end: 20021220
  18. PREDNISOLONE [Suspect]
     Dosage: 50 MG, 2 , INTRAVENOUS; 50 MG, 2 -0, INTRAVENOUS
     Route: 042
     Dates: start: 20021217
  19. GLYCEROL 2.6% [Suspect]
     Dosage: 10 ML, TID, ORAL; 10 ML, QD, ORAL
     Route: 048
     Dates: end: 20021202
  20. GLYCEROL 2.6% [Suspect]
     Dosage: 10 ML, TID, ORAL; 10 ML, QD, ORAL
     Route: 048
     Dates: start: 20021113
  21. LORAZEPAM [Suspect]
     Dosage: ORAL
     Route: 048
     Dates: start: 20021129, end: 20021214
  22. ATORVASTATIN CALCIUM [Suspect]
     Dosage: 40 MG, QD, ORAL; ORAL
     Route: 048
     Dates: end: 20021203
  23. ATORVASTATIN CALCIUM [Suspect]
     Dosage: 40 MG, QD, ORAL; ORAL
     Route: 048
     Dates: start: 20021101
  24. NORVASC [Suspect]
     Dosage: 5 MG, QD, ORAL; ORAL
     Route: 048
     Dates: end: 20021214
  25. NORVASC [Suspect]
     Dosage: 5 MG, QD, ORAL; ORAL
     Route: 048
     Dates: start: 20021101
  26. DERMATOP [Suspect]
     Dosage: TOPICAL; TOPICAL
     Route: 061
     Dates: start: 20021128, end: 20021130
  27. DERMATOP [Suspect]
     Dosage: TOPICAL; TOPICAL
     Route: 061
     Dates: start: 20021204, end: 20021214
  28. PHENYTOIN [Suspect]
     Dosage: TID, ORAL; BID, ORAL
     Route: 048
     Dates: start: 20021128, end: 20021214
  29. PHENYTOIN [Suspect]
     Dosage: TID, ORAL; BID, ORAL
     Route: 048
     Dates: start: 20021113
  30. ZICKAUHER [Suspect]
     Dates: start: 20021204, end: 20021224
  31. ZICKAUHER [Suspect]
     Dates: start: 20021128, end: 20021230
  32. PLAVIX [Suspect]
     Dosage: 75 MG, QD, ORAL; ORAL
     Route: 048
     Dates: start: 20021128, end: 20021214
  33. PLAVIX [Suspect]
     Dosage: 75 MG, QD, ORAL; ORAL
     Route: 048
     Dates: start: 20021029
  34. AMPHO-MORONAL(AMPHOTERICIN B) [Suspect]
     Dosage: BID,; TID,
     Dates: start: 20021129, end: 20021205
  35. TEPILTA(ALUMINIUM HYDROXIDE GEL, MAGNESIUM HYDROXIDE, OXETACAINE) [Suspect]
     Dosage: BID, ORAL; TID, ORAL
     Route: 048
     Dates: end: 20021214
  36. TEPILTA(ALUMINIUM HYDROXIDE GEL, MAGNESIUM HYDROXIDE, OXETACAINE) [Suspect]
     Dosage: BID, ORAL; TID, ORAL
     Route: 048
     Dates: start: 20021129
  37. CEFPODOXIME PROXETIL [Suspect]
     Dosage: 20 ML, BID, ORAL
     Route: 048
     Dates: start: 20021202, end: 20021214
  38. VITADRAL(RETINOL PALMITATE) [Suspect]
     Dosage: 4X6, ORAL; 4X4, ORAL
     Route: 048
     Dates: end: 20021214
  39. VITADRAL(RETINOL PALMITATE) [Suspect]
     Dosage: 4X6, ORAL; 4X4, ORAL
     Route: 048
     Dates: start: 20021203
  40. XYLOCAINE [Suspect]
     Dosage: BUCCAL
     Route: 002
     Dates: start: 20021205, end: 20021224
  41. FORTIMEL(PROTEINS NOS) [Suspect]
     Dosage: ORAL
     Route: 048
     Dates: start: 20021206, end: 20021224
  42. DIFLUCAN [Suspect]
     Dosage: ORAL
     Route: 048
     Dates: start: 20021206, end: 20021214
  43. BERIGLOBIN(IMMUNOGLOBULIN HUMAN NORMAL) [Suspect]
     Dosage: INTRAMUSCULAR
     Route: 030
     Dates: start: 20021212, end: 20021214
  44. THOMAEJONIN(CALCIUM CHLORIDE DIHYDRATE, MAGNESIUM CHLORIDE HEXAHYDRATE [Suspect]
     Dosage: INTRAVENOUS
     Route: 042
     Dates: start: 20021212, end: 20021218
  45. TEMGESIC(BUPRENORPHINE HYDROCHLORIDE) [Suspect]
     Dosage: 2 DF, QD, ORAL
     Route: 048
     Dates: start: 20021213
  46. TPN ELECTROLYTES IN PLASTIC CONTAINER [Suspect]
     Dosage: INTRAVENOUS
     Route: 042
     Dates: start: 20021213, end: 20021222
  47. BEPANTOL(DEXPANTHENOL) [Suspect]
     Dosage: TOPICAL
     Route: 061
     Dates: start: 20021214, end: 20021224
  48. DEXAMETHASONE [Suspect]
     Dosage: 2X8MG, INTRAVENOUS
     Route: 042
     Dates: start: 20021215, end: 20021218
  49. JONOSTERIL(CALCIUM ACETATE, MAGNESIUM ACETATE, POTASSIUM ACETATE, SODI [Suspect]
     Dosage: INTRAVENOUS
     Route: 042
     Dates: start: 20021215, end: 20021216
  50. SCOPOLAMINE [Suspect]
     Dosage: SUBCUTANEOUS
     Route: 058
     Dates: start: 20021215, end: 20021217
  51. DIAZEPAM [Suspect]
     Dosage: INTRAVENOUS
     Route: 042
     Dates: start: 20021215, end: 20021218
  52. LASIX [Suspect]
     Dosage: INTRAVENOUS
     Route: 042
     Dates: start: 20021215, end: 20021219
  53. MANNITOL [Suspect]
     Dosage: INTRAVENOUS
     Route: 042
     Dates: start: 20021215, end: 20021219
  54. RANITIDINE HCL [Suspect]
     Dosage: INTRAVENOUS
     Route: 042
     Dates: start: 20021215, end: 20021219
  55. DIFLUCAN [Suspect]
     Dosage: INTRAVENOUS
     Route: 042
     Dates: start: 20021215, end: 20021220
  56. FRAXIPARIN(HEPARIN-FRACTION, CALCIUM SALT) [Suspect]
     Dosage: SUBCUTANEOUS
     Route: 058
     Dates: start: 20021216, end: 20021222
  57. LACTULOSE [Suspect]
     Dosage: ORAL
     Route: 048
     Dates: start: 20021218, end: 20021226
  58. LASIX [Suspect]
     Dosage: ORAL
     Route: 048
     Dates: start: 20021220, end: 20021222
  59. LINOLA-FETT N(9, 11-LINOLEIC ACID, LINOLEIC ACID) [Suspect]
     Dosage: TOPICAL
     Route: 061
     Dates: start: 20021220, end: 20021226
  60. MST(MOPRHINE SULFATE) [Suspect]
     Dosage: 1 DF, TID, ORAL
     Route: 048
     Dates: start: 20021221, end: 20021226

REACTIONS (2)
  - STEVENS-JOHNSON SYNDROME [None]
  - TOXIC EPIDERMAL NECROLYSIS [None]
